FAERS Safety Report 4675601-6 (Version None)
Quarter: 2005Q2

REPORT INFORMATION
  Report Type: 
  Country: None (occurrence: None)
  Receive Date: 20050527
  Receipt Date: 20050422
  Transmission Date: 20051028
  Serious: No
  Sender: FDA-Public Use
  Company Number: US-BRISTOL-MYERS SQUIBB COMPANY-12944179

PATIENT
  Age: 10 Year
  Sex: Female

DRUGS (4)
  1. ABILIFY [Suspect]
     Route: 048
     Dates: start: 20050304
  2. STRATTERA [Concomitant]
  3. RISPERDAL [Concomitant]
  4. PROZAC [Concomitant]

REACTIONS (1)
  - ACNE [None]
